FAERS Safety Report 12477420 (Version 2)
Quarter: 2016Q2

REPORT INFORMATION
  Report Type: Report from Study
  Country: MX (occurrence: MX)
  Receive Date: 20160617
  Receipt Date: 20160620
  Transmission Date: 20160815
  Serious: Yes (Hospitalization)
  Sender: FDA-Public Use
  Company Number: MX-SA-2016SA015675

PATIENT
  Sex: Female

DRUGS (1)
  1. LEMTRADA [Suspect]
     Active Substance: ALEMTUZUMAB
     Indication: MULTIPLE SCLEROSIS
     Dosage: DOSE/FREQUENCY - INFUSION
     Route: 041
     Dates: start: 20160111, end: 20160115

REACTIONS (20)
  - Neck pain [Recovered/Resolved]
  - Laryngeal pain [Recovered/Resolved]
  - Constipation [Unknown]
  - Pharyngitis [Unknown]
  - Abdominal pain upper [Unknown]
  - Insomnia [Recovered/Resolved]
  - Haematochezia [Recovered/Resolved]
  - Thrombocytopenia [Recovered/Resolved]
  - Weight decreased [Unknown]
  - Anxiety [Recovered/Resolved]
  - Nausea [Recovered/Resolved]
  - Sensation of foreign body [Unknown]
  - Mouth ulceration [Recovered/Resolved]
  - Dyspepsia [Recovered/Resolved]
  - Headache [Recovering/Resolving]
  - Dyspepsia [Unknown]
  - Diarrhoea [Recovered/Resolved]
  - Polymorphic light eruption [Not Recovered/Not Resolved]
  - Pyrexia [Recovered/Resolved]
  - Rash erythematous [Not Recovered/Not Resolved]

NARRATIVE: CASE EVENT DATE: 201601
